FAERS Safety Report 24566145 (Version 1)
Quarter: 2024Q4

REPORT INFORMATION
  Report Type: Spontaneous
  Country: VN (occurrence: VN)
  Receive Date: 20241030
  Receipt Date: 20241030
  Transmission Date: 20250114
  Serious: Yes (Hospitalization, Disabling, Other)
  Sender: AUROBINDO
  Company Number: VN-MLMSERVICE-20241010-PI223327-00130-1

PATIENT
  Age: 41 Year
  Sex: Male

DRUGS (1)
  1. TENOFOVIR DISOPROXIL FUMARATE [Suspect]
     Active Substance: TENOFOVIR DISOPROXIL FUMARATE
     Indication: Chronic hepatitis B
     Dosage: USING FOR THE PAST DECADE.
     Route: 065

REACTIONS (2)
  - Fanconi syndrome [Recovered/Resolved]
  - Hypophosphataemic osteomalacia [Recovered/Resolved]
